FAERS Safety Report 5567012-6 (Version None)
Quarter: 2007Q4

REPORT INFORMATION
  Report Type: 
  Country: None (occurrence: None)
  Receive Date: 20071219
  Receipt Date: 20071211
  Transmission Date: 20080405
  Serious: Yes (Hospitalization)
  Sender: FDA-Public Use
  Company Number: CA-ELI_LILLY_AND_COMPANY-CA200610000184

PATIENT
  Sex: Male
  Weight: 20.2 kg

DRUGS (8)
  1. SOMATROPIN [Suspect]
     Indication: GROWTH HORMONE DEFICIENCY
     Dosage: 0.5 MG, DAILY (1/D)
     Route: 058
     Dates: start: 20031209, end: 20051014
  2. SOMATROPIN [Suspect]
     Dosage: 0.6 MG, DAILY (1/D)
     Route: 058
     Dates: start: 20070615
  3. SYNTHROID [Concomitant]
     Indication: HYPOTHYROIDISM
     Dosage: UNK, UNK
     Dates: start: 20010118
  4. SEPTRA [Concomitant]
     Indication: URINARY TRACT INFECTION
     Dates: start: 20040101
  5. PREVACID [Concomitant]
     Indication: GASTROOESOPHAGEAL REFLUX DISEASE
     Dosage: UNK, UNK
     Dates: start: 20050218
  6. RITALIN [Concomitant]
     Indication: PSYCHOMOTOR HYPERACTIVITY
     Dates: start: 20050927
  7. CIPROFLOXACIN HCL [Concomitant]
     Indication: URINARY TRACT INFECTION
     Dates: start: 20050628, end: 20050701
  8. OXYBUTYNIN CHLORIDE [Concomitant]
     Indication: NEUROGENIC BLADDER
     Dates: start: 19990101

REACTIONS (1)
  - SCOLIOSIS [None]
